FAERS Safety Report 8762296 (Version 1)
Quarter: 2012Q4

REPORT INFORMATION
  Report Type: 
  Country: US (occurrence: US)
  Receive Date: 20120831
  Receipt Date: 20120831
  Transmission Date: 20130627
  Serious: Yes (Death, Other)
  Sender: FDA-Public Use
  Company Number: US-TEVA-356177USA

PATIENT
  Sex: Male

DRUGS (3)
  1. TREANDA [Suspect]
     Indication: B-CELL LYMPHOMA
     Dosage: day 1 and 2
     Route: 042
  2. GAMMAGLOBULIN [Suspect]
     Route: 042
  3. RITUXIMAB [Suspect]

REACTIONS (4)
  - Stevens-Johnson syndrome [Fatal]
  - B-cell lymphoma [Fatal]
  - Immunoglobulins decreased [Unknown]
  - Neutropenia [Unknown]
